FAERS Safety Report 20796481 (Version 3)
Quarter: 2022Q3

REPORT INFORMATION
  Report Type: Spontaneous
  Country: BE (occurrence: BE)
  Receive Date: 20220506
  Receipt Date: 20220812
  Transmission Date: 20221026
  Serious: Yes (Hospitalization)
  Sender: FDA-Public Use
  Company Number: BE-MYLANLABS-2022M1032826

PATIENT
  Sex: Female

DRUGS (1)
  1. EPIPEN [Suspect]
     Active Substance: EPINEPHRINE
     Indication: Seizure
     Dosage: ONCE (ONE SINGLE DOSE)
     Route: 030

REACTIONS (2)
  - Device failure [Unknown]
  - Off label use [Unknown]
